FAERS Safety Report 21026850 (Version 1)
Quarter: 2022Q2

REPORT INFORMATION
  Report Type: Spontaneous
  Country: US (occurrence: US)
  Receive Date: 20220630
  Receipt Date: 20220630
  Transmission Date: 20220721
  Serious: No
  Sender: FDA-Public Use
  Company Number: US-LEO Pharma-343464

PATIENT
  Sex: Male

DRUGS (1)
  1. ADBRY [Suspect]
     Active Substance: TRALOKINUMAB-LDRM
     Indication: Dermatitis
     Dosage: INITIAL DOSE DOSING NOT REPORTED, THEN AT 300 MG EVERY 2 WEEKS
     Dates: start: 20220421

REACTIONS (1)
  - Abdominal distension [Unknown]
